FAERS Safety Report 14893014 (Version 3)
Quarter: 2018Q3

REPORT INFORMATION
  Report Type: Spontaneous
  Country: US (occurrence: US)
  Receive Date: 20180514
  Receipt Date: 20180824
  Transmission Date: 20181010
  Serious: No
  Sender: FDA-Public Use
  Company Number: US-BAYER-2018-089646

PATIENT
  Age: 36 Year
  Sex: Female

DRUGS (1)
  1. MIRENA [Suspect]
     Active Substance: LEVONORGESTREL
     Indication: MENORRHAGIA
     Dosage: 20 MCG/24HR, CONT
     Route: 015
     Dates: start: 20171108, end: 20180426

REACTIONS (5)
  - Anxiety [Recovering/Resolving]
  - Depression [Recovering/Resolving]
  - Weight increased [None]
  - Fluid retention [None]
  - Acne [None]

NARRATIVE: CASE EVENT DATE: 201801
